FAERS Safety Report 4805861-X (Version None)
Quarter: 2005Q4

REPORT INFORMATION
  Report Type: 
  Country: None (occurrence: None)
  Receive Date: 20051018
  Receipt Date: 20051018
  Transmission Date: 20060501
  Serious: Yes (Hospitalization)
  Sender: FDA-Public Use
  Company Number: None

PATIENT
  Age: 77 Year
  Sex: Male
  Weight: 70.3075 kg

DRUGS (3)
  1. ETOPOSIDE [Suspect]
     Indication: NON-SMALL CELL LUNG CANCER
     Dosage: 180 MG 10/3-10/5 IV
     Route: 042
     Dates: start: 20051003, end: 20051017
  2. ATENOLOL [Suspect]
     Indication: HYPERTENSION
     Dosage: 50MG DAILY PO
     Route: 048
     Dates: start: 20020827, end: 20051017
  3. VERAPAMIL [Concomitant]

REACTIONS (3)
  - BRADYCARDIA [None]
  - ORTHOSTATIC HYPOTENSION [None]
  - OXYGEN SATURATION DECREASED [None]
